FAERS Safety Report 7263582-0 (Version None)
Quarter: 2011Q1

REPORT INFORMATION
  Report Type: 
  Country: None (occurrence: None)
  Receive Date: 20110130
  Receipt Date: 20101129
  Transmission Date: 20110831
  Serious: No
  Sender: FDA-Public Use
  Company Number: US-ABBOTT-10P-163-0684116-00

PATIENT
  Sex: Male
  Weight: 83.536 kg

DRUGS (4)
  1. DICYCLOMINE [Concomitant]
     Indication: PRODUCT USED FOR UNKNOWN INDICATION
  2. MULTI-VITAMIN [Concomitant]
     Indication: VITAMIN SUPPLEMENTATION
  3. HUMIRA [Suspect]
     Indication: CROHN'S DISEASE
     Dates: start: 20080101
  4. AZATHIOPRINE [Concomitant]
     Indication: CROHN'S DISEASE

REACTIONS (3)
  - INJECTION SITE PAIN [None]
  - INJECTION SITE SWELLING [None]
  - DEVICE MALFUNCTION [None]
